FAERS Safety Report 8200028-X (Version None)
Quarter: 2012Q1

REPORT INFORMATION
  Report Type: 
  Country: None (occurrence: None)
  Receive Date: 20120312
  Receipt Date: 20120306
  Transmission Date: 20120608
  Serious: No
  Sender: FDA-Public Use
  Company Number: US-PFIZER INC-2012061168

PATIENT
  Sex: Female
  Weight: 18.141 kg

DRUGS (3)
  1. GENOTROPIN [Suspect]
     Dosage: 1 MG, 2 DAYS PER WEEK
     Route: 058
  2. GUAIFENESIN [Concomitant]
     Dosage: 200 MG, UNK
  3. GENOTROPIN [Suspect]
     Dosage: 0.8 MG, 4 DAYS PER WEEK
     Route: 058

REACTIONS (2)
  - PAIN IN EXTREMITY [None]
  - AGGRESSION [None]
